FAERS Safety Report 5016637-5 (Version None)
Quarter: 2006Q2

REPORT INFORMATION
  Report Type: 
  Country: None (occurrence: None)
  Receive Date: 20060419
  Receipt Date: 20051117
  Transmission Date: 20061013
  Serious: No
  Sender: FDA-Public Use
  Company Number: US_0511123702

PATIENT
  Age: 58 Year
  Sex: Female

DRUGS (5)
  1. ALIMTA [Suspect]
     Dosage: 500 MG/M2
     Dates: start: 20050505
  2. VITAMIN B12 [Concomitant]
  3. FOLIC ACID [Concomitant]
  4. DEXAMETHASONE [Concomitant]
  5. CISPLATIN [Concomitant]

REACTIONS (2)
  - CUTANEOUS LUPUS ERYTHEMATOSUS [None]
  - RASH [None]
